FAERS Safety Report 8050013 (Version 5)
Quarter: 2012Q4

REPORT INFORMATION
  Report Type: Report from Study
  Country: DE (occurrence: DE)
  Receive Date: 20110722
  Receipt Date: 20121119
  Transmission Date: 20130627
  Serious: Yes (Hospitalization)
  Sender: FDA-Public Use
  Company Number: DE-SANOFI-AVENTIS-2011SA044875

PATIENT
  Age: 73 Year
  Sex: Male
  Weight: 90 kg

DRUGS (8)
  1. OXALIPLATIN [Suspect]
     Indication: RECTAL CANCER
     Dosage: actual dose: 105 mg, on day 1, 8, 15, 22 and 29
     Route: 042
     Dates: start: 20110629, end: 20110705
  2. CAPECITABINE [Suspect]
     Indication: RECTAL CANCER
     Dosage: actual dose: 3500 mg
     Route: 048
     Dates: start: 20110620, end: 20110703
  3. CAPECITABINE [Suspect]
     Indication: RECTAL CANCER
     Route: 048
     Dates: start: 20110709, end: 20110709
  4. THERAPEUTIC RADIOPHARMACEUTICALS [Suspect]
     Indication: RECTAL CANCER
     Dosage: 13 fractions of 1.8 Gy, total 23.4 Gy
     Route: 065
     Dates: start: 20110620, end: 20110709
  5. LOPERAMIDE [Concomitant]
     Indication: DIARRHEA
     Route: 048
     Dates: start: 20110624
  6. BELOC-ZOC MITE [Concomitant]
     Indication: HYPERTENSION
     Route: 048
  7. ATORVASTATIN [Concomitant]
     Indication: HYPERCHOLESTEROLEMIA
     Route: 048
  8. HERZASS ^RATIOPHARM^ [Concomitant]
     Indication: HAEMODILUTION
     Route: 048

REACTIONS (4)
  - Urinary retention [Recovered/Resolved]
  - Gastrointestinal pain [Recovered/Resolved]
  - Diarrhoea [Recovered/Resolved]
  - Proctalgia [Not Recovered/Not Resolved]
